FAERS Safety Report 25242855 (Version 3)
Quarter: 2025Q2

REPORT INFORMATION
  Report Type: Report from Study
  Country: US (occurrence: US)
  Receive Date: 20250427
  Receipt Date: 20250505
  Transmission Date: 20250716
  Serious: Yes (Other)
  Sender: ABBVIE
  Company Number: US-ABBVIE-6247291

PATIENT
  Sex: Female

DRUGS (2)
  1. SKYRIZI [Suspect]
     Active Substance: RISANKIZUMAB-RZAA
     Indication: Psoriasis
     Route: 058
  2. METHOTREXATE [Suspect]
     Active Substance: METHOTREXATE
     Indication: Product used for unknown indication
     Route: 065

REACTIONS (8)
  - Limb operation [Unknown]
  - Burning sensation [Not Recovered/Not Resolved]
  - Thoracic outlet syndrome [Unknown]
  - Drug ineffective [Unknown]
  - General physical health deterioration [Unknown]
  - Eye disorder [Unknown]
  - Wrong product administered [Unknown]
  - Fibromyalgia [Unknown]
